APPROVED DRUG PRODUCT: GEMIFLOXACIN MESYLATE
Active Ingredient: GEMIFLOXACIN MESYLATE
Strength: EQ 320MG BASE
Dosage Form/Route: TABLET;ORAL
Application: A090466 | Product #001
Applicant: ORBION PHARMACEUTICALS PRIVATE LTD
Approved: Jun 15, 2015 | RLD: No | RS: No | Type: DISCN